FAERS Safety Report 6980153-1 (Version None)
Quarter: 2010Q3

REPORT INFORMATION
  Report Type: 
  Country: None (occurrence: None)
  Receive Date: 20100909
  Receipt Date: 20100830
  Transmission Date: 20110219
  Serious: Yes (Other)
  Sender: FDA-Public Use
  Company Number: 2010P1001244

PATIENT
  Sex: Male

DRUGS (2)
  1. TRAMADOL HCL [Suspect]
  2. CLARITHROMYCIN [Suspect]

REACTIONS (2)
  - DRUG INTERACTION [None]
  - HALLUCINATIONS, MIXED [None]
